FAERS Safety Report 13422489 (Version 1)
Quarter: 2017Q2

REPORT INFORMATION
  Report Type: Spontaneous
  Country: US (occurrence: US)
  Receive Date: 20170410
  Receipt Date: 20170410
  Transmission Date: 20170830
  Serious: No
  Sender: FDA-Public Use
  Company Number: US-GLAXOSMITHKLINE-US2017049083

PATIENT
  Age: 76 Year
  Sex: Female

DRUGS (1)
  1. ADVAIR HFA [Suspect]
     Active Substance: FLUTICASONE PROPIONATE\SALMETEROL XINAFOATE
     Indication: ASTHMA
     Dosage: 1 PUFF(S), UNK
     Route: 055

REACTIONS (6)
  - Drug dose omission [Unknown]
  - Product cleaning inadequate [Unknown]
  - Cough [Unknown]
  - Malaise [Unknown]
  - Wrong technique in product usage process [Unknown]
  - Device use error [Unknown]

NARRATIVE: CASE EVENT DATE: 20170404
